FAERS Safety Report 10234842 (Version 1)
Quarter: 2014Q1

REPORT INFORMATION
  Report Type: Spontaneous
  Country: US (occurrence: None)
  Receive Date: 20140306
  Receipt Date: 20140306
  Transmission Date: 20141002
  Serious: Yes (Hospitalization)
  Sender: FDA-Public Use
  Company Number: 163-21880-13050770

PATIENT
  Age: 79 Year
  Sex: Female

DRUGS (6)
  1. REVLIMID (LENALIDOMIDE) (25 MILLIGRAM, CAPSULES) [Suspect]
     Indication: PLASMA CELL MYELOMA
     Route: 048
     Dates: start: 20130411, end: 20130502
  2. CIPRO (CIPROFLOXACIN) (UNKNOWN) [Concomitant]
  3. AMARYL (GLIMEPIRIDE) (UNKNOWN) [Concomitant]
  4. LANTUS (INSULIN GLARGINE) (UNKNOWN) [Concomitant]
  5. METOPROLOL (UNKNOWN) [Concomitant]
  6. SYNTHROID (LEVOTHYROXINE SODIUM) (UNKNOWN) [Concomitant]

REACTIONS (4)
  - Renal failure [None]
  - Atrial fibrillation [None]
  - Malaise [None]
  - Full blood count decreased [None]
